FAERS Safety Report 5097905-8 (Version None)
Quarter: 2006Q3

REPORT INFORMATION
  Report Type: 
  Country: None (occurrence: None)
  Receive Date: 20060905
  Receipt Date: 20060822
  Transmission Date: 20061208
  Serious: Yes (Disabling)
  Sender: FDA-Public Use
  Company Number: 033-16

PATIENT
  Age: 69 Year
  Sex: Female

DRUGS (1)
  1. TEVETEN HCT [Suspect]
     Dates: start: 20050429, end: 20051021

REACTIONS (1)
  - PARKINSON'S DISEASE [None]
